FAERS Safety Report 5263152-X (Version None)
Quarter: 2007Q1

REPORT INFORMATION
  Report Type: 
  Country: None (occurrence: None)
  Receive Date: 20070312
  Receipt Date: 20070228
  Transmission Date: 20070707
  Serious: Yes (Death, Hospitalization, Other)
  Sender: FDA-Public Use
  Company Number: JP-PFIZER INC-2007013297

PATIENT
  Age: 64 Year
  Sex: Male

DRUGS (2)
  1. ZITHROMAC [Suspect]
     Route: 048
     Dates: start: 20060517, end: 20060501
  2. PREDNISOLONE [Concomitant]

REACTIONS (2)
  - MULTI-ORGAN FAILURE [None]
  - RHABDOMYOLYSIS [None]
